FAERS Safety Report 17868692 (Version 1)
Quarter: 2020Q2

REPORT INFORMATION
  Report Type: Spontaneous
  Country: US (occurrence: US)
  Receive Date: 20200605
  Receipt Date: 20200605
  Transmission Date: 20200714
  Serious: Yes (Death)
  Sender: FDA-Public Use
  Company Number: None

PATIENT
  Age: 70 Year
  Sex: Male
  Weight: 79.65 kg

DRUGS (1)
  1. REMDESIVIR EUA [Suspect]
     Active Substance: REMDESIVIR

REACTIONS (3)
  - Multiple organ dysfunction syndrome [None]
  - Respiratory failure [None]
  - Shock [None]

NARRATIVE: CASE EVENT DATE: 20200604
